FAERS Safety Report 9508075 (Version 1)
Quarter: 2013Q3

REPORT INFORMATION
  Report Type: Report from Study
  Country: BR (occurrence: BR)
  Receive Date: 20130909
  Receipt Date: 20130909
  Transmission Date: 20140515
  Serious: Yes (Other)
  Sender: FDA-Public Use
  Company Number: PHHY2013BR097472

PATIENT
  Age: 51 Year
  Sex: Male

DRUGS (3)
  1. BUDESONIDE [Suspect]
     Indication: RHINITIS
     Dosage: UNK UKN, UNK
  2. OMEPRAZOL [Suspect]
     Indication: GASTROOESOPHAGEAL REFLUX DISEASE
     Dosage: 40 MG/DAY
  3. TIOTROPIUM [Concomitant]
     Dosage: 18 UG/DAY
     Dates: start: 200902

REACTIONS (3)
  - Fungal infection [Unknown]
  - Rhinitis [Unknown]
  - Blood immunoglobulin E increased [Unknown]
